FAERS Safety Report 7949239-9 (Version None)
Quarter: 2011Q4

REPORT INFORMATION
  Report Type: 
  Country: None (occurrence: None)
  Receive Date: 20111125
  Receipt Date: 20111109
  Transmission Date: 20120403
  Serious: Yes (Other)
  Sender: FDA-Public Use
  Company Number: CIO11020807

PATIENT
  Sex: Female

DRUGS (3)
  1. METAMUCIL-2 [Suspect]
     Indication: PROPHYLAXIS
     Dosage: 4 CAPSUL, 3 /DAY, INTRAORAL
     Route: 048
     Dates: start: 20111102, end: 20111108
  2. METAMUCIL-2 [Suspect]
     Indication: BLOOD CHOLESTEROL INCREASED
     Dosage: 4 CAPSUL, 3 /DAY, INTRAORAL
     Route: 048
     Dates: start: 20111102, end: 20111108
  3. ALBUTEROL [Concomitant]

REACTIONS (9)
  - DYSPNOEA [None]
  - HYPERSENSITIVITY [None]
  - SENSATION OF FOREIGN BODY [None]
  - WHEEZING [None]
  - RESPIRATORY DISORDER [None]
  - RASH MACULAR [None]
  - CHEST DISCOMFORT [None]
  - CONDITION AGGRAVATED [None]
  - RASH PRURITIC [None]
